FAERS Safety Report 12230909 (Version 1)
Quarter: 2016Q2

REPORT INFORMATION
  Report Type: Spontaneous
  Country: SE (occurrence: SE)
  Receive Date: 20160401
  Receipt Date: 20160401
  Transmission Date: 20160815
  Serious: Yes (Other)
  Sender: FDA-Public Use
  Company Number: SE-TEVA-648149ISR

PATIENT
  Age: 64 Year
  Sex: Female

DRUGS (1)
  1. OXASCAND 15 MG TABLETT [Suspect]
     Active Substance: OXAZEPAM
     Indication: ANXIETY
     Dosage: MAX 3/DAY
     Route: 048
     Dates: start: 20160227, end: 20160320

REACTIONS (2)
  - Hypersensitivity [Recovered/Resolved]
  - Product substitution issue [Recovered/Resolved]

NARRATIVE: CASE EVENT DATE: 20160227
